FAERS Safety Report 4429142-1 (Version None)
Quarter: 2004Q3

REPORT INFORMATION
  Report Type: 
  Country: None (occurrence: None)
  Receive Date: 20040726
  Receipt Date: 20040419
  Transmission Date: 20050211
  Serious: No
  Sender: FDA-Public Use
  Company Number: USA040361652

PATIENT
  Age: 69 Year
  Sex: Female
  Weight: 60 kg

DRUGS (12)
  1. FORTEO [Suspect]
     Indication: OSTEOPOROSIS
     Dosage: 20 UG/1 DAY
     Dates: start: 20030909, end: 20040316
  2. TOPROL-XL [Concomitant]
  3. DIGOXIN [Concomitant]
  4. AMITRIPTYLINE HCL [Concomitant]
  5. ULTRAM [Concomitant]
  6. PREDNISONE [Concomitant]
  7. CALCIUM [Concomitant]
  8. CLONAZEPAM [Concomitant]
  9. ACIPHEX (RABEPRAZOLE SODIUIM) [Concomitant]
  10. AVAPRO [Concomitant]
  11. TIAZAC [Concomitant]
  12. MULTI-VITAMIN [Concomitant]

REACTIONS (3)
  - BREAST PAIN [None]
  - CHEST PAIN [None]
  - HEART RATE IRREGULAR [None]
